FAERS Safety Report 22072920 (Version 2)
Quarter: 2023Q1

REPORT INFORMATION
  Report Type: Spontaneous
  Country: UA (occurrence: None)
  Receive Date: 20230308
  Receipt Date: 20230310
  Transmission Date: 20230418
  Serious: Yes (Other)
  Sender: FDA-Public Use
  Company Number: 2023A051507

PATIENT
  Age: 49 Year
  Sex: Male

DRUGS (5)
  1. BRILINTA [Suspect]
     Active Substance: TICAGRELOR
     Indication: Acute myocardial infarction
     Route: 048
     Dates: start: 20220828
  2. BISOPROLOL [Concomitant]
     Active Substance: BISOPROLOL
  3. ROMASIK [Concomitant]
  4. MAGNIKOR [Concomitant]
     Dosage: 75
  5. HYDROCHLOROTHIAZIDE\RAMIPRIL [Concomitant]
     Active Substance: HYDROCHLOROTHIAZIDE\RAMIPRIL
     Dosage: 10/12.5

REACTIONS (4)
  - Inguinal hernia [Not Recovered/Not Resolved]
  - Arthralgia [Not Recovered/Not Resolved]
  - Haematoma [Not Recovered/Not Resolved]
  - Contusion [Not Recovered/Not Resolved]
